FAERS Safety Report 17192689 (Version 1)
Quarter: 2019Q4

REPORT INFORMATION
  Report Type: Spontaneous
  Country: US (occurrence: US)
  Receive Date: 20191223
  Receipt Date: 20191223
  Transmission Date: 20200122
  Serious: No
  Sender: FDA-Public Use
  Company Number: US-SA-2019SA350895

PATIENT
  Age: 75 Year
  Sex: Female

DRUGS (1)
  1. SOLIQUA 100/33 [Suspect]
     Active Substance: INSULIN GLARGINE\LIXISENATIDE
     Indication: TYPE 2 DIABETES MELLITUS
     Dosage: 44 U, QD
     Route: 065
     Dates: start: 201705

REACTIONS (4)
  - Alopecia [Unknown]
  - Blood thyroid stimulating hormone decreased [Unknown]
  - Nasal congestion [Unknown]
  - Blood glucose decreased [Unknown]
